FAERS Safety Report 8504943-9 (Version None)
Quarter: 2012Q3

REPORT INFORMATION
  Report Type: 
  Country: None (occurrence: None)
  Receive Date: 20120712
  Receipt Date: 20120709
  Transmission Date: 20120928
  Serious: Yes (Death, Life-Threatening, Other)
  Sender: FDA-Public Use
  Company Number: PHHY2012FR027455

PATIENT
  Sex: Female
  Weight: 75 kg

DRUGS (6)
  1. OXYGEN THERAPY [Concomitant]
  2. SIMVASTATIN [Concomitant]
     Indication: HYPERCHOLESTEROLAEMIA
     Dosage: 1 TABLET DAILY
  3. ZOLEDRONOC ACID [Suspect]
     Route: 042
  4. TENORMIN [Concomitant]
     Indication: HYPERTENSION
     Dosage: 1 TABLET DAILY
  5. ENALAPRIL MALEATE [Concomitant]
     Indication: HYPERTENSION
     Dosage: ONE  TABLET DAILY
  6. VITAMIN D [Concomitant]
     Dosage: UNK UKN, UNK

REACTIONS (2)
  - LOSS OF CONSCIOUSNESS [None]
  - SUDDEN DEATH [None]
